FAERS Safety Report 8907905 (Version 1)
Quarter: 2012Q4

REPORT INFORMATION
  Report Type: 
  Country: FR (occurrence: FR)
  Receive Date: 20121114
  Receipt Date: 20121114
  Transmission Date: 20130627
  Serious: Yes (Death)
  Sender: FDA-Public Use
  Company Number: PHHY2012FR104671

PATIENT
  Age: 57 Year
  Sex: Female

DRUGS (2)
  1. PACLITAXEL [Suspect]
     Indication: THYROID CANCER
     Dosage: 175 mg/m2, every four weeks
     Dates: start: 200903, end: 200908
  2. CARBOPLATIN [Suspect]
     Indication: THYROID CANCER
     Dosage: AUC 5
     Dates: start: 200903, end: 200908

REACTIONS (2)
  - Pleural effusion [Fatal]
  - Neurotoxicity [Unknown]
